FAERS Safety Report 9314612 (Version 2)
Quarter: 2013Q2

REPORT INFORMATION
  Report Type: Spontaneous
  Country: NO (occurrence: NO)
  Receive Date: 20130529
  Receipt Date: 20130603
  Transmission Date: 20140414
  Serious: Yes (Other)
  Sender: FDA-Public Use
  Company Number: NO-SANOFI-AVENTIS-2013SA053102

PATIENT
  Sex: Male

DRUGS (7)
  1. MULTAQ [Suspect]
     Indication: ATRIAL FIBRILLATION
     Route: 048
     Dates: start: 20130314, end: 20130429
  2. CORDARONE [Suspect]
     Indication: ATRIAL FIBRILLATION
     Dosage: 1200 MG/24 HOURS, THEN 200 MG X 2 FOR 1 WEEK AND MAINTENANCE DOSE 200 MG X 1
     Route: 048
     Dates: start: 20110908, end: 20120103
  3. CORDARONE [Suspect]
     Indication: ATRIAL FIBRILLATION
     Route: 065
     Dates: start: 20120104, end: 20120327
  4. AMLODIPINE [Concomitant]
     Route: 065
  5. APROVEL [Concomitant]
     Route: 065
  6. SIMVASTATIN [Concomitant]
     Route: 065
  7. MAREVAN [Concomitant]
     Route: 065

REACTIONS (1)
  - Hyperthyroidism [Not Recovered/Not Resolved]
